FAERS Safety Report 7560518-X (Version None)
Quarter: 2011Q2

REPORT INFORMATION
  Report Type: 
  Country: None (occurrence: None)
  Receive Date: 20110621
  Receipt Date: 20110607
  Transmission Date: 20111010
  Serious: Yes (Other)
  Sender: FDA-Public Use
  Company Number: FR-AMGEN-FRASP2011011344

PATIENT
  Age: 27 Year
  Sex: Male
  Weight: 80 kg

DRUGS (3)
  1. ENBREL [Suspect]
     Indication: PSORIASIS
     Dosage: 50 MG, UNK
     Route: 058
     Dates: start: 20081013, end: 20091001
  2. ENBREL [Suspect]
     Dosage: UNK
     Route: 058
     Dates: start: 20091012, end: 20100501
  3. ENBREL [Suspect]
     Dosage: 50 MG, UNK
     Dates: start: 20100501, end: 20110131

REACTIONS (3)
  - SKIN DEPIGMENTATION [None]
  - ALOPECIA AREATA [None]
  - MOLLUSCUM CONTAGIOSUM [None]
